FAERS Safety Report 9281749 (Version 3)
Quarter: 2013Q4

REPORT INFORMATION
  Report Type: Spontaneous
  Country: US (occurrence: US)
  Receive Date: 20130510
  Receipt Date: 20131122
  Transmission Date: 20140711
  Serious: Yes (Hospitalization)
  Sender: FDA-Public Use
  Company Number: US-B.I. PHARMACEUTICALS,INC./RIDGEFIELD-2013-BI-13049BP

PATIENT
  Age: 82 Year
  Sex: Female
  Weight: 61.23 kg

DRUGS (7)
  1. PRADAXA [Suspect]
     Indication: ATRIAL FIBRILLATION
     Dosage: 150 MG
     Route: 048
     Dates: start: 20120313, end: 20120813
  2. CELEXA [Concomitant]
     Dosage: 20 MG
     Route: 048
  3. LIPITOR [Concomitant]
     Dosage: 70 MG
     Route: 048
  4. ASPIRIN [Concomitant]
     Dosage: 81 MG
     Route: 048
  5. ZESTRIL [Concomitant]
     Dosage: 40 MG
     Route: 048
  6. FUROSEMIDE [Concomitant]
     Dosage: 80 MG
     Route: 048
  7. THERAGAN [Concomitant]

REACTIONS (5)
  - Anaemia [Unknown]
  - Gingival bleeding [Unknown]
  - Renal failure acute [Unknown]
  - Coagulopathy [Unknown]
  - Epistaxis [Unknown]
